FAERS Safety Report 4591574-9 (Version None)
Quarter: 2005Q1

REPORT INFORMATION
  Report Type: 
  Country: None (occurrence: None)
  Receive Date: 20050223
  Receipt Date: 20050215
  Transmission Date: 20050727
  Serious: Yes (Life-Threatening, Hospitalization)
  Sender: FDA-Public Use
  Company Number: 004176

PATIENT
  Sex: Male

DRUGS (4)
  1. METHOTREXATE [Suspect]
     Indication: SARCOIDOSIS
     Dosage: 12.50 MG, WEEKLY,
     Dates: start: 20021125, end: 20040119
  2. FOLACIN (FOLIC ACID, CALCIUM PHOSPHATE) [Concomitant]
  3. ERYTHROMYCIN STEARATE (ERYTHROMYCIN STEARATE) [Concomitant]
  4. PREDNISONE [Concomitant]

REACTIONS (4)
  - HEPATIC FUNCTION ABNORMAL [None]
  - ORGAN FAILURE [None]
  - PNEUMONITIS [None]
  - RESPIRATORY FAILURE [None]
